FAERS Safety Report 9369087 (Version 2)
Quarter: 2013Q3

REPORT INFORMATION
  Report Type: Spontaneous
  Country: DE (occurrence: DE)
  Receive Date: 20130626
  Receipt Date: 20130703
  Transmission Date: 20140515
  Serious: Yes (Other)
  Sender: FDA-Public Use
  Company Number: PHHY2013DE064785

PATIENT
  Age: 47 Year
  Sex: Female

DRUGS (2)
  1. VOLTAREN [Suspect]
     Indication: INTERVERTEBRAL DISC PROTRUSION
     Dosage: UNK UKN, UNK
  2. CORTISONE [Concomitant]
     Indication: INTERVERTEBRAL DISC PROTRUSION
     Dosage: UNK UKN, UNK

REACTIONS (2)
  - Cutaneous lupus erythematosus [Unknown]
  - Rosacea [Unknown]
